FAERS Safety Report 17119470 (Version 3)
Quarter: 2019Q4

REPORT INFORMATION
  Report Type: Report from Study
  Country: None (occurrence: ES)
  Receive Date: 20191206
  Receipt Date: 20191223
  Transmission Date: 20200122
  Serious: Yes (Hospitalization)
  Sender: FDA-Public Use
  Company Number: ES-ABBVIE-19K-144-3178634-00

PATIENT
  Sex: Female
  Weight: 53 kg

DRUGS (2)
  1. DUODOPA [Suspect]
     Active Substance: CARBIDOPA\LEVODOPA
     Indication: PARKINSON^S DISEASE
     Dosage: MORNING DOSE 7 ML,?CONTINUOUS DOSE 2.7 ML/H
     Route: 050
     Dates: start: 20190523, end: 2019
  2. DUODOPA [Suspect]
     Active Substance: CARBIDOPA\LEVODOPA
     Dosage: MORNING DOSE DECREASED TO 6 ML?AND CONTINUOUS DOSE TO 2.5ML/H
     Route: 050
     Dates: start: 2019

REACTIONS (4)
  - Device occlusion [Recovered/Resolved]
  - Hip fracture [Recovering/Resolving]
  - Dyskinesia [Not Recovered/Not Resolved]
  - Fall [Recovered/Resolved]

NARRATIVE: CASE EVENT DATE: 2019
